FAERS Safety Report 8941685 (Version 4)
Quarter: 2013Q4

REPORT INFORMATION
  Report Type: Spontaneous
  Country: US (occurrence: US)
  Receive Date: 20121203
  Receipt Date: 20131216
  Transmission Date: 20140711
  Serious: Yes (Other)
  Sender: FDA-Public Use
  Company Number: US-BRISTOL-MYERS SQUIBB COMPANY-17149246

PATIENT
  Age: 78 Year
  Sex: Female
  Weight: 55.33 kg

DRUGS (4)
  1. COUMADIN [Suspect]
     Indication: AORTIC VALVE REPLACEMENT
     Dosage: DOSE REDUCED TO 4MG?EXP DATE: SEP 2014?LOT:2F69883B EXP:AUG2014?5 MG SUNDAY,4 MG REST OF WEEK
  2. PRAVASTATIN SODIUM [Suspect]
  3. LISINOPRIL [Concomitant]
  4. MULTIVITAMIN [Concomitant]

REACTIONS (7)
  - Aortic calcification [Unknown]
  - Cough [Unknown]
  - International normalised ratio fluctuation [Unknown]
  - Alopecia [Unknown]
  - Rotator cuff syndrome [Unknown]
  - Urinary tract infection [Unknown]
  - Tooth disorder [Unknown]
